FAERS Safety Report 7675667-5 (Version None)
Quarter: 2011Q3

REPORT INFORMATION
  Report Type: 
  Country: None (occurrence: None)
  Receive Date: 20110810
  Receipt Date: 20110804
  Transmission Date: 20111222
  Serious: Yes (Hospitalization)
  Sender: FDA-Public Use
  Company Number: JP-B.I. PHARMACEUTICALS,INC./RIDGEFIELD-2011-BP-14489NB

PATIENT
  Sex: Female
  Weight: 65 kg

DRUGS (10)
  1. TETRAMIDE [Concomitant]
     Indication: ANXIETY DISORDER
     Dosage: 30 MG
     Route: 065
  2. AMLODIPINE [Concomitant]
     Indication: HYPERTENSION
     Dosage: 5 MG
     Route: 065
  3. TELMISARTAN AND HYDROCHLOROTHIAZIDE [Suspect]
     Indication: HYPERTENSION
     Dosage: 1 DF
     Route: 048
     Dates: start: 20110303, end: 20110602
  4. NOVORAPID [Concomitant]
     Indication: TYPE 1 DIABETES MELLITUS
     Dosage: 28 U
     Route: 065
     Dates: start: 20070301
  5. AMOBAN [Concomitant]
     Indication: INSOMNIA
     Dosage: 7.5 MG
     Route: 065
  6. CRESTOR [Concomitant]
     Indication: DYSLIPIDAEMIA
     Dosage: 2.5 MG
     Route: 065
  7. VALSARTAN  AND HYDROCHLOROTHIAZIDE [Suspect]
     Indication: HYPERTENSION
     Route: 065
     Dates: start: 20101201, end: 20110120
  8. CARVEDILOL [Concomitant]
     Indication: HYPERTENSION
     Dosage: 10 MG
     Route: 065
  9. GRAMALIL [Concomitant]
     Indication: ANXIETY DISORDER
     Dosage: 125 MG
     Route: 065
  10. OMEPRAZOLE [Concomitant]
     Indication: GASTROOESOPHAGEAL REFLUX DISEASE
     Dosage: 20 MG
     Route: 065

REACTIONS (2)
  - HYPONATRAEMIA [None]
  - RENAL TUBULAR DISORDER [None]
